FAERS Safety Report 8098975-5 (Version None)
Quarter: 2012Q1

REPORT INFORMATION
  Report Type: 
  Country: None (occurrence: None)
  Receive Date: 20120129
  Receipt Date: 20111023
  Transmission Date: 20120608
  Serious: No
  Sender: FDA-Public Use
  Company Number: US-ABBOTT-11P-163-0867827-00

PATIENT
  Age: 30 Year
  Sex: Female

DRUGS (4)
  1. PROZAC [Concomitant]
     Indication: PRODUCT USED FOR UNKNOWN INDICATION
  2. BUPROPION HYDROCHLORIDE [Concomitant]
     Indication: PRODUCT USED FOR UNKNOWN INDICATION
  3. HUMIRA [Suspect]
     Indication: CROHN'S DISEASE
     Dates: start: 20110901
  4. SEASONIQUE BC [Concomitant]
     Indication: PRODUCT USED FOR UNKNOWN INDICATION

REACTIONS (1)
  - APHTHOUS STOMATITIS [None]
